FAERS Safety Report 9206828 (Version 1)
Quarter: 2013Q2

REPORT INFORMATION
  Report Type: Spontaneous
  Country: IT (occurrence: IT)
  Receive Date: 20130403
  Receipt Date: 20130403
  Transmission Date: 20140414
  Serious: Yes (Other)
  Sender: FDA-Public Use
  Company Number: IT-ABBOTT-12P-083-1019382-00

PATIENT
  Age: 67 Year
  Sex: Female

DRUGS (10)
  1. RYTMONORM [Suspect]
     Indication: ATRIAL FIBRILLATION
     Route: 048
     Dates: start: 20080101, end: 20121119
  2. RYTMONORM [Suspect]
     Route: 048
     Dates: start: 20121119, end: 20121119
  3. BISOPROLOLO FUMARATO [Concomitant]
     Indication: PRODUCT USED FOR UNKNOWN INDICATION
  4. GLIBOMET [Concomitant]
     Indication: PRODUCT USED FOR UNKNOWN INDICATION
  5. KCL-RETARD [Concomitant]
     Indication: PRODUCT USED FOR UNKNOWN INDICATION
  6. PANTECTA [Concomitant]
     Indication: PRODUCT USED FOR UNKNOWN INDICATION
  7. KANRENOL [Concomitant]
     Indication: PRODUCT USED FOR UNKNOWN INDICATION
  8. PREVEX [Concomitant]
     Indication: PRODUCT USED FOR UNKNOWN INDICATION
  9. VASORETIC [Concomitant]
     Indication: PRODUCT USED FOR UNKNOWN INDICATION
  10. CARDIOASPIRIN [Concomitant]
     Indication: PRODUCT USED FOR UNKNOWN INDICATION

REACTIONS (3)
  - Presyncope [Recovered/Resolved]
  - Asthenia [Recovered/Resolved]
  - Bradycardia [Recovered/Resolved]
